FAERS Safety Report 20623449 (Version 5)
Quarter: 2022Q4

REPORT INFORMATION
  Report Type: Report from Study
  Country: US (occurrence: US)
  Receive Date: 20220322
  Receipt Date: 20221024
  Transmission Date: 20230113
  Serious: Yes (Hospitalization)
  Sender: FDA-Public Use
  Company Number: US-HORIZON THERAPEUTICS-HZN-2022-001349

PATIENT

DRUGS (4)
  1. TEPEZZA [Suspect]
     Active Substance: TEPROTUMUMAB-TRBW
     Indication: Endocrine ophthalmopathy
     Dosage: 29.7ML EQUAL TO 1416MG INTRAVENOUS INFUSION, EVERY 3 WEEKS
     Route: 042
     Dates: start: 20220215
  2. TEPEZZA [Suspect]
     Active Substance: TEPROTUMUMAB-TRBW
     Indication: Toxic goitre
  3. SODIUM CHLORIDE [Concomitant]
     Active Substance: SODIUM CHLORIDE
  4. STERILE WATER [Concomitant]
     Active Substance: WATER

REACTIONS (13)
  - Blood pressure increased [Unknown]
  - Headache [Unknown]
  - Vomiting [Recovering/Resolving]
  - Dizziness [Unknown]
  - Gingival recession [Unknown]
  - Dysgeusia [Unknown]
  - Muscle spasms [Recovering/Resolving]
  - Nausea [Recovering/Resolving]
  - Fatigue [Recovering/Resolving]
  - Diarrhoea [Unknown]
  - Hypoacusis [Unknown]
  - Vision blurred [Unknown]
  - Exophthalmos [Not Recovered/Not Resolved]

NARRATIVE: CASE EVENT DATE: 20220101
